FAERS Safety Report 7617398-3 (Version None)
Quarter: 2011Q3

REPORT INFORMATION
  Report Type: 
  Country: None (occurrence: None)
  Receive Date: 20110718
  Receipt Date: 20110713
  Transmission Date: 20111222
  Serious: Yes (Other)
  Sender: FDA-Public Use
  Company Number: US-PFIZER INC-2011158960

PATIENT
  Sex: Female
  Weight: 102.4 kg

DRUGS (5)
  1. MULTI-VITAMINS [Concomitant]
     Indication: SUPPLEMENTATION THERAPY
     Dosage: UNK
  2. NUVIGIL [Concomitant]
     Indication: SLEEP APNOEA SYNDROME
     Dosage: UNK
  3. GEODON [Suspect]
     Indication: SCHIZOAFFECTIVE DISORDER
     Dosage: UNK
     Dates: start: 20100601, end: 20100601
  4. CYMBALTA [Concomitant]
     Indication: DEPRESSION
     Dosage: UNK
  5. LORATADINE [Concomitant]
     Dosage: UNK

REACTIONS (1)
  - DYSTONIA [None]
